FAERS Safety Report 9492657 (Version 1)
Quarter: 2013Q3

REPORT INFORMATION
  Report Type: Spontaneous
  Country: US (occurrence: US)
  Receive Date: 20130830
  Receipt Date: 20130830
  Transmission Date: 20140515
  Serious: Yes (Hospitalization)
  Sender: FDA-Public Use
  Company Number: US-B.I. PHARMACEUTICALS,INC./RIDGEFIELD-2013-BI-26554BP

PATIENT
  Age: 65 Year
  Sex: Male
  Weight: 73 kg

DRUGS (11)
  1. COMBIVENT [Suspect]
     Indication: ASTHMA
     Dosage: STRENGTH: 18 MCG / 103 MCG;
     Route: 055
     Dates: start: 2007
  2. NOVOLIN 70-30 [Concomitant]
     Indication: DIABETES MELLITUS
     Dosage: 40 U
     Route: 058
     Dates: start: 2003
  3. COREG [Concomitant]
     Indication: HYPERTENSION
     Dosage: 6.25 MG
     Route: 048
     Dates: start: 201301
  4. LYRICA [Concomitant]
     Indication: NEURALGIA
     Dosage: 450 MG
     Route: 048
     Dates: start: 2006
  5. ASPIRIN [Concomitant]
     Indication: PROPHYLAXIS
     Dosage: (TABLET) STRENGTH: 81 MG; DAILY DOSE: 81 MG
     Route: 048
     Dates: start: 2011
  6. POTASSIUM [Concomitant]
     Indication: BLOOD POTASSIUM DECREASED
     Dosage: 20 MEQ
     Route: 048
     Dates: start: 201301
  7. ZOCOR [Concomitant]
     Indication: BLOOD CHOLESTEROL INCREASED
     Dosage: 20 MG
     Route: 048
     Dates: start: 1983
  8. ZOLOFT [Concomitant]
     Indication: ANXIETY
     Dosage: 100 MG
     Route: 048
     Dates: start: 2006
  9. ZOLOFT [Concomitant]
     Indication: DEPRESSION
  10. HYDROCODONE [Concomitant]
     Indication: NEURALGIA
     Dosage: 10 MG
     Route: 048
     Dates: start: 2006
  11. LASIX [Concomitant]
     Indication: OEDEMA
     Dosage: 60 MG
     Route: 048
     Dates: start: 201301

REACTIONS (6)
  - Myocardial infarction [Recovered/Resolved]
  - Pneumonia [Recovered/Resolved]
  - Pneumonia [Recovered/Resolved]
  - Gun shot wound [Recovered/Resolved]
  - Patella fracture [Recovered/Resolved]
  - Off label use [Not Recovered/Not Resolved]
